FAERS Safety Report 11088009 (Version 1)
Quarter: 2015Q2

REPORT INFORMATION
  Report Type: Spontaneous
  Country: US (occurrence: US)
  Receive Date: 20150504
  Receipt Date: 20150504
  Transmission Date: 20150821
  Serious: No
  Sender: FDA-Public Use
  Company Number: US-TEVA-557109USA

PATIENT
  Sex: Female
  Weight: 49.03 kg

DRUGS (4)
  1. PROAIR HFA [Suspect]
     Active Substance: ALBUTEROL SULFATE
     Indication: DIAPHRAGMATIC DISORDER
     Dosage: AS REQUIRED
     Route: 055
  2. DELSYM [Concomitant]
     Active Substance: DEXTROMETHORPHAN
     Indication: COUGH
  3. VENZONHAGE [Concomitant]
     Indication: COUGH
  4. MUCINEX [Concomitant]
     Active Substance: GUAIFENESIN
     Indication: COUGH

REACTIONS (3)
  - Wrong technique in drug usage process [Unknown]
  - Cough [Not Recovered/Not Resolved]
  - Underdose [Unknown]
